FAERS Safety Report 8822344 (Version 4)
Quarter: 2013Q4

REPORT INFORMATION
  Report Type: Spontaneous
  Country: FR (occurrence: FR)
  Receive Date: 20121003
  Receipt Date: 20131114
  Transmission Date: 20140711
  Serious: Yes (Hospitalization, Disabling)
  Sender: FDA-Public Use
  Company Number: FR-UCBSA-067874

PATIENT
  Age: 76 Year
  Sex: Male

DRUGS (2)
  1. KEPPRA [Suspect]
     Dosage: TOTAL DAILY DOSE:500 MG
     Route: 048
     Dates: start: 20101208, end: 2012
  2. DEPAKINE CHRONO [Suspect]
     Dosage: PROGRESSIVE DOSE DECREASE OF 1/4 DOSE EVERY MONTH
     Route: 048
     Dates: start: 2004, end: 2012

REACTIONS (2)
  - Parkinsonism [Recovering/Resolving]
  - Urinary tract infection [Unknown]
